FAERS Safety Report 11492273 (Version 1)
Quarter: 2015Q3

REPORT INFORMATION
  Report Type: Spontaneous
  Country: US (occurrence: None)
  Receive Date: 20150910
  Receipt Date: 20150910
  Transmission Date: 20151125
  Serious: Yes (Death)
  Sender: FDA-Public Use
  Company Number: None

PATIENT
  Age: 87 Year
  Sex: Female

DRUGS (11)
  1. CLONAZEPAM. [Concomitant]
     Active Substance: CLONAZEPAM
  2. IBUPROFEN. [Concomitant]
     Active Substance: IBUPROFEN
  3. DONOR STOOL OPEN BIOME [Suspect]
     Active Substance: FECAL MICROBIOTA
     Indication: CLOSTRIDIUM DIFFICILE INFECTION
     Dosage: 250 CC SIGMOIDOSCOPY
     Dates: start: 20150702
  4. INSULIN [Concomitant]
     Active Substance: INSULIN NOS
  5. LISINOPRIL. [Concomitant]
     Active Substance: LISINOPRIL
  6. GABAPENTIN. [Concomitant]
     Active Substance: GABAPENTIN
  7. S BOULARDII [Concomitant]
  8. FUROSIMIDE [Concomitant]
     Active Substance: FUROSEMIDE
  9. METFORMIN [Concomitant]
     Active Substance: METFORMIN HYDROCHLORIDE
  10. MIRTAZEPINE [Concomitant]
  11. DONOR STOOL OPEN BIOME [Suspect]
     Active Substance: FECAL MICROBIOTA
     Indication: CLOSTRIDIUM DIFFICILE INFECTION
     Dosage: 250 CC SIGMOIDOSCOPY
     Dates: start: 20150723

REACTIONS (10)
  - Leukocytosis [None]
  - Asthenia [None]
  - Probiotic therapy [None]
  - Surgical procedure repeated [None]
  - Pain [None]
  - Diarrhoea [None]
  - Mental status changes [None]
  - General physical health deterioration [None]
  - Confusional state [None]
  - Abdominal distension [None]

NARRATIVE: CASE EVENT DATE: 20150801
